FAERS Safety Report 6098304-2 (Version None)
Quarter: 2009Q1

REPORT INFORMATION
  Report Type: 
  Country: None (occurrence: None)
  Receive Date: 20090302
  Receipt Date: 20090219
  Transmission Date: 20090719
  Serious: Yes (Other)
  Sender: FDA-Public Use
  Company Number: US-PFIZER INC-2009174727

PATIENT
  Age: 60 Year
  Sex: Male

DRUGS (4)
  1. ZYRTEC [Suspect]
     Indication: COUGH
     Dosage: 10 MG, 1X/DAY
     Route: 048
     Dates: start: 20080901, end: 20081001
  2. SYNTHROID [Concomitant]
     Indication: HYPOTHYROIDISM
     Dosage: 125 MG, 1X/DAY
     Dates: start: 20040101
  3. PROGRAFT [Concomitant]
     Indication: TRANSPLANT REJECTION
  4. ACYCLOVIR [Concomitant]
     Dosage: 400 MG, 2X/DAY
     Dates: start: 20070901

REACTIONS (3)
  - OFF LABEL USE [None]
  - POLLAKIURIA [None]
  - PROSTATOMEGALY [None]
